FAERS Safety Report 9156667 (Version 2)
Quarter: 2013Q1

REPORT INFORMATION
  Report Type: Spontaneous
  Country: US (occurrence: None)
  Receive Date: 20130211
  Receipt Date: 20130221
  Transmission Date: 20140127
  Serious: Yes (Hospitalization)
  Sender: FDA-Public Use
  Company Number: 2013SUN00057

PATIENT
  Age: 64 Year
  Sex: Male
  Weight: 95.2 kg

DRUGS (9)
  1. METFORMIN [Suspect]
     Indication: TYPE 2 DIABETES MELLITUS
     Route: 048
     Dates: start: 200904, end: 20100920
  2. GLIPIZIDE [Suspect]
     Indication: TYPE 2 DIABETES MELLITUS
     Route: 048
     Dates: start: 20091021, end: 20101012
  3. IBUPROFEN (IBUPROFEN) [Concomitant]
  4. DIPHENHYDRAMINE (DIPHENHYDRAMINE) [Concomitant]
  5. CETIRIZINE HCI (CETIRIZINE HYDROCHLORIDE) [Concomitant]
  6. ASPIRIN (ACETYL SALICYLIC ACID) [Concomitant]
  7. CLOPIDOGREL (CLOPIDOGREL BISULPHATE) [Concomitant]
  8. METOPROLOL (METOPROLOL) [Concomitant]
  9. LISINOPRIL (LISINOPRIL) [Concomitant]

REACTIONS (2)
  - Atrial fibrillation [None]
  - Acute myocardial infarction [None]
